FAERS Safety Report 16044466 (Version 1)
Quarter: 2019Q1

REPORT INFORMATION
  Report Type: Spontaneous
  Country: US (occurrence: US)
  Receive Date: 20190306
  Receipt Date: 20190306
  Transmission Date: 20190418
  Serious: Yes (Hospitalization)
  Sender: FDA-Public Use
  Company Number: US-CELGENEUS-USA-20190207327

PATIENT
  Sex: Male

DRUGS (2)
  1. REVLIMID [Suspect]
     Active Substance: LENALIDOMIDE
     Indication: PLASMA CELL MYELOMA
     Dosage: 10 MILLIGRAM
     Route: 048
     Dates: start: 20180716
  2. REVLIMID [Suspect]
     Active Substance: LENALIDOMIDE
     Indication: BONE CANCER

REACTIONS (3)
  - Nasopharyngitis [Not Recovered/Not Resolved]
  - Pneumonia [Unknown]
  - Deep vein thrombosis [Unknown]
